FAERS Safety Report 9410455 (Version 2)
Quarter: 2013Q3

REPORT INFORMATION
  Report Type: Spontaneous
  Country: US (occurrence: US)
  Receive Date: 20130719
  Receipt Date: 20130808
  Transmission Date: 20140515
  Serious: Yes (Hospitalization)
  Sender: FDA-Public Use
  Company Number: US-BANPHARM-20131360

PATIENT
  Age: 79 Year
  Sex: Female
  Weight: 49.9 kg

DRUGS (2)
  1. ALEVE LIQUID GELS 220 MG [Suspect]
     Indication: BACK PAIN
     Dosage: 1 DF, PRN,
     Route: 048
     Dates: start: 2012
  2. EXTRA STRENGHT ACETAMINOPHEN HARMEN [Concomitant]

REACTIONS (2)
  - Pollakiuria [Not Recovered/Not Resolved]
  - Incorrect drug administration duration [Unknown]
